FAERS Safety Report 8851203 (Version 1)
Quarter: 2012Q4

REPORT INFORMATION
  Report Type: 
  Country: US (occurrence: US)
  Receive Date: 20121019
  Receipt Date: 20121019
  Transmission Date: 20130627
  Serious: Yes (Other)
  Sender: FDA-Public Use
  Company Number: US-BRISTOL-MYERS SQUIBB COMPANY-16940827

PATIENT
  Age: 67 Year
  Sex: Male
  Weight: 96 kg

DRUGS (3)
  1. YERVOY [Suspect]
     Indication: MALIGNANT MELANOMA
     Dosage: Last infusion :30Aug12
No of infu:2
     Dates: start: 20120628
  2. LISINOPRIL [Concomitant]
  3. CRESTOR [Concomitant]

REACTIONS (1)
  - Rash generalised [Recovering/Resolving]
